FAERS Safety Report 10606299 (Version 2)
Quarter: 2014Q4

REPORT INFORMATION
  Report Type: Spontaneous
  Country: JP (occurrence: None)
  Receive Date: 20141121
  Receipt Date: 20141209
  Transmission Date: 20150529
  Serious: Yes (Other)
  Sender: FDA-Public Use
  Company Number: JP2014JPN023270

PATIENT
  Age: 4 Decade
  Sex: Male

DRUGS (2)
  1. TRUVADA (EMTRICITABINE + TENOFOVIR DISOPROXIL FUMARATE) [Concomitant]
  2. TIVICAY [Suspect]
     Active Substance: DOLUTEGRAVIR SODIUM
     Indication: HIV INFECTION
     Route: 048
     Dates: start: 201405

REACTIONS (4)
  - Hyperthyroidism [None]
  - Tremor [None]
  - Hypoaesthesia [None]
  - Palpitations [None]

NARRATIVE: CASE EVENT DATE: 201409
